FAERS Safety Report 10528315 (Version 1)
Quarter: 2014Q4

REPORT INFORMATION
  Report Type: Spontaneous
  Country: US (occurrence: None)
  Receive Date: 20141017
  Receipt Date: 20141017
  Transmission Date: 20150528
  Serious: Yes (Life-Threatening, Other)
  Sender: FDA-Public Use
  Company Number: None

PATIENT
  Age: 52 Year
  Sex: Female
  Weight: 55.34 kg

DRUGS (1)
  1. LEVAQUIN [Suspect]
     Active Substance: LEVOFLOXACIN
     Indication: DIVERTICULITIS
     Dosage: 5 TIMES INTERVENEOUSLY-, THREE TIMES DAILY, INTO A VEIN
     Dates: start: 20131016, end: 20131019

REACTIONS (5)
  - Paraesthesia [None]
  - Burning sensation [None]
  - Vision blurred [None]
  - Myalgia [None]
  - Drug hypersensitivity [None]

NARRATIVE: CASE EVENT DATE: 20131016
